FAERS Safety Report 26047002 (Version 1)
Quarter: 2025Q4

REPORT INFORMATION
  Report Type: Spontaneous
  Country: US (occurrence: None)
  Receive Date: 20251114
  Receipt Date: 20251114
  Transmission Date: 20260117
  Serious: Yes (Hospitalization)
  Sender: FDA-CTU
  Company Number: None

PATIENT
  Age: 61 Year
  Sex: Female

DRUGS (1)
  1. FORTEO [Suspect]
     Active Substance: TERIPARATIDE
     Indication: Product used for unknown indication
     Dosage: OTHER STRENGTH : 560MCG/2.24ML;?FREQUENCY : DAILY;?

REACTIONS (2)
  - Transient ischaemic attack [None]
  - Hereditary motor and sensory neuropathy [None]
